FAERS Safety Report 4509585-8 (Version None)
Quarter: 2004Q4

REPORT INFORMATION
  Report Type: 
  Country: None (occurrence: None)
  Receive Date: 20041119
  Receipt Date: 20041105
  Transmission Date: 20050328
  Serious: Yes (Death, Hospitalization)
  Sender: FDA-Public Use
  Company Number: 2004-00544

PATIENT
  Age: 63 Year
  Sex: Male
  Weight: 97.5 kg

DRUGS (13)
  1. VELCADE [Suspect]
     Indication: LYMPHOMA
     Dosage: 2.60 MG, INTRAVENOUS
     Route: 042
     Dates: start: 20040813, end: 20040823
  2. MORPHINE (MORPHINE) PATCH [Concomitant]
  3. OXYCODONE (OXYCODONE) [Concomitant]
  4. OXYCONTIN (OXYCONDONE HYDROCHLORIDE) [Concomitant]
  5. INSULIN [Concomitant]
  6. LOTENSIN [Concomitant]
  7. COZAAR [Concomitant]
  8. ALLOPURINOL [Concomitant]
  9. LASIX [Concomitant]
  10. ALDACTONE [Concomitant]
  11. DURAGESIC [Concomitant]
  12. ATIVAN [Concomitant]
  13. ADVAIR (FLUTICASONE PROPIONATE, SALMETEROL XINAFOATE) [Concomitant]

REACTIONS (21)
  - ABDOMINAL DISTENSION [None]
  - ABDOMINAL PAIN [None]
  - ASTHENIA [None]
  - CHEST PAIN [None]
  - COMA [None]
  - DIABETES MELLITUS [None]
  - DYSPNOEA [None]
  - EATING DISORDER [None]
  - FATIGUE [None]
  - HEART RATE INCREASED [None]
  - HYPERKALAEMIA [None]
  - INTESTINAL OBSTRUCTION [None]
  - LYMPHADENOPATHY [None]
  - LYMPHOMA [None]
  - MALIGNANT NEOPLASM PROGRESSION [None]
  - NAUSEA [None]
  - NEUROTOXICITY [None]
  - RENAL FAILURE ACUTE [None]
  - THROMBOCYTOPENIA [None]
  - VOMITING [None]
  - WEIGHT INCREASED [None]
